FAERS Safety Report 9195998 (Version 1)
Quarter: 2013Q1

REPORT INFORMATION
  Report Type: Spontaneous
  Country: US (occurrence: None)
  Receive Date: 20120705
  Receipt Date: 20120705
  Transmission Date: 20140127
  Serious: Yes (Hospitalization, Other)
  Sender: FDA-Public Use
  Company Number: US-CYPR-2012-000011

PATIENT
  Age: 57 Year
  Sex: Male
  Weight: 85.73 kg

DRUGS (6)
  1. CLOPIDOGREL\PLACEBO [Suspect]
     Indication: ANTIPLATELET THERAPY
     Route: 048
     Dates: start: 20110401, end: 20120306
  2. ASPIRIN [Suspect]
     Indication: CORONARY ARTERY DISEASE
     Route: 048
     Dates: start: 20100324, end: 20100506
  3. COREG [Concomitant]
  4. ZOCOR [Concomitant]
  5. LISINOPRIL [Concomitant]
  6. CYPHER STENT [Concomitant]

REACTIONS (1)
  - Myocardial infarction [None]
